FAERS Safety Report 24001560 (Version 1)
Quarter: 2024Q2

REPORT INFORMATION
  Report Type: Other
  Country: IN (occurrence: None)
  Receive Date: 20240621
  Receipt Date: 20240621
  Transmission Date: 20240715
  Serious: Yes (Hospitalization)
  Sender: FDA-Public Use
  Company Number: IN-Invatech-000347

PATIENT
  Age: 24 Year
  Sex: Male

DRUGS (7)
  1. CYPROHEPTADINE [Suspect]
     Active Substance: CYPROHEPTADINE
     Indication: Serotonin syndrome
     Dosage: 8 MG QID (FOUR TIMES A DAY) FOR 4 DAYS
  2. DEXTROMETHORPHAN [Concomitant]
     Active Substance: DEXTROMETHORPHAN
     Indication: Cough
  3. CHLORPHENIRAMINE [Concomitant]
     Active Substance: CHLORPHENIRAMINE
     Indication: Cough
  4. LINEZOLID [Concomitant]
     Active Substance: LINEZOLID
     Indication: Pyrexia
  5. ONDANSETRON [Concomitant]
     Active Substance: ONDANSETRON
     Indication: Pyrexia
  6. CYPROHEPTADINE [Suspect]
     Active Substance: CYPROHEPTADINE
     Indication: Serotonin syndrome
     Dosage: 2 MG, 2 HOURLY
  7. CYPROHEPTADINE [Suspect]
     Active Substance: CYPROHEPTADINE
     Indication: Serotonin syndrome
     Dosage: 12 MG LOADING DOSE

REACTIONS (3)
  - Therapy partial responder [Unknown]
  - Pyrexia [Recovered/Resolved]
  - Abnormal behaviour [Recovered/Resolved]
